FAERS Safety Report 22321455 (Version 1)
Quarter: 2023Q2

REPORT INFORMATION
  Report Type: Report from Study
  Country: US (occurrence: US)
  Receive Date: 20230515
  Receipt Date: 20230515
  Transmission Date: 20230721
  Serious: No
  Sender: FDA-Public Use
  Company Number: US-INCYTE CORPORATION-2023IN003544

PATIENT

DRUGS (2)
  1. JAKAFI [Suspect]
     Active Substance: RUXOLITINIB
     Indication: Blood disorder
     Dosage: 15 MILLIGRAM, BID
     Route: 065
  2. HYDREA [Suspect]
     Active Substance: HYDROXYUREA
     Dosage: UNK
     Route: 065

REACTIONS (6)
  - Increased tendency to bruise [Unknown]
  - Post procedural contusion [Unknown]
  - Pruritus [Unknown]
  - Decreased appetite [Unknown]
  - Abdominal pain upper [Unknown]
  - Off label use [Unknown]

NARRATIVE: CASE EVENT DATE: 20230316
